FAERS Safety Report 16446778 (Version 1)
Quarter: 2019Q2

REPORT INFORMATION
  Report Type: Spontaneous
  Country: US (occurrence: US)
  Receive Date: 20190618
  Receipt Date: 20190618
  Transmission Date: 20190711
  Serious: No
  Sender: FDA-Public Use
  Company Number: US-PFIZER INC-2019189089

PATIENT
  Age: 77 Year
  Sex: Female
  Weight: 68.4 kg

DRUGS (3)
  1. ESTRING [Suspect]
     Active Substance: ESTRADIOL
     Indication: ATROPHIC VULVOVAGINITIS
     Dosage: UNK(INSERT 1 RING VAGINALLY EVERY 90 DAYS)
     Route: 067
     Dates: start: 20170801
  2. ESTRING [Suspect]
     Active Substance: ESTRADIOL
     Indication: ATROPHIC VULVOVAGINITIS
  3. ESTRING [Suspect]
     Active Substance: ESTRADIOL
     Indication: VAGINAL PROLAPSE
     Dosage: UNK

REACTIONS (6)
  - Atrophic vulvovaginitis [Unknown]
  - Urethral caruncle [Unknown]
  - Oestrogen deficiency [Unknown]
  - Tenderness [Unknown]
  - Product use issue [Not Recovered/Not Resolved]
  - Erythema [Unknown]

NARRATIVE: CASE EVENT DATE: 20170614
